FAERS Safety Report 20108929 (Version 1)
Quarter: 2021Q4

REPORT INFORMATION
  Report Type: Spontaneous
  Country: US (occurrence: US)
  Receive Date: 20211124
  Receipt Date: 20211124
  Transmission Date: 20220303
  Serious: Yes (Other)
  Sender: FDA-Public Use
  Company Number: US-NOVARTISPH-NVSC2021US265689

PATIENT
  Sex: Male

DRUGS (17)
  1. DOCETAXEL [Suspect]
     Active Substance: DOCETAXEL
     Indication: Prostate cancer metastatic
     Dosage: 60 MG/M2
     Route: 065
     Dates: start: 20200813
  2. DOCETAXEL [Suspect]
     Active Substance: DOCETAXEL
     Dosage: 60 MG/M2
     Route: 065
     Dates: start: 20200903
  3. DOCETAXEL [Suspect]
     Active Substance: DOCETAXEL
     Dosage: 60 MG/M2
     Route: 065
     Dates: start: 20200924
  4. DOCETAXEL [Suspect]
     Active Substance: DOCETAXEL
     Dosage: 60 MG/M2
     Route: 065
     Dates: start: 20201015
  5. DOCETAXEL [Suspect]
     Active Substance: DOCETAXEL
     Dosage: 60 MG/M2
     Route: 065
     Dates: start: 20201105
  6. DOCETAXEL [Suspect]
     Active Substance: DOCETAXEL
     Dosage: 60 MG/M2
     Route: 065
     Dates: start: 20201127
  7. DOCETAXEL [Suspect]
     Active Substance: DOCETAXEL
     Dosage: 60 MG/M2
     Route: 065
     Dates: start: 20201217
  8. DOCETAXEL [Suspect]
     Active Substance: DOCETAXEL
     Dosage: 60 MG/M2
     Route: 065
     Dates: start: 20210128
  9. DOCETAXEL [Suspect]
     Active Substance: DOCETAXEL
     Dosage: 60 MG/M2
     Route: 065
     Dates: start: 20210128
  10. ZOMETA [Suspect]
     Active Substance: ZOLEDRONIC ACID
     Indication: Product used for unknown indication
     Dosage: 4 MG
     Route: 065
     Dates: start: 20170921
  11. RADIUM [Suspect]
     Active Substance: RADIUM
     Indication: Product used for unknown indication
     Dosage: UNK
     Route: 065
     Dates: start: 20210430
  12. RADIUM [Suspect]
     Active Substance: RADIUM
     Dosage: UNK
     Route: 065
     Dates: start: 20210527
  13. RADIUM [Suspect]
     Active Substance: RADIUM
     Dosage: UNK
     Route: 065
     Dates: start: 20210729
  14. PEMBROLIZUMAB [Suspect]
     Active Substance: PEMBROLIZUMAB
     Indication: Product used for unknown indication
     Dosage: UNK
     Route: 065
     Dates: start: 20211028
  15. LUPRON [Suspect]
     Active Substance: LEUPROLIDE ACETATE
     Indication: Product used for unknown indication
     Dosage: UNK
     Route: 065
     Dates: start: 20211007
  16. ENZALUTAMIDE [Suspect]
     Active Substance: ENZALUTAMIDE
     Indication: Hormone-refractory prostate cancer
     Dosage: UNK
     Route: 065
     Dates: start: 20191209
  17. VENETOCLAX [Suspect]
     Active Substance: VENETOCLAX
     Indication: Hormone-refractory prostate cancer
     Dosage: UNK
     Route: 065
     Dates: start: 20191209

REACTIONS (1)
  - Prostate cancer metastatic [Unknown]
